FAERS Safety Report 8819872 (Version 1)
Quarter: 2012Q4

REPORT INFORMATION
  Report Type: 
  Country: GB (occurrence: GB)
  Receive Date: 20121001
  Receipt Date: 20121001
  Transmission Date: 20130627
  Serious: Yes (Other)
  Sender: FDA-Public Use
  Company Number: GB-GILEAD-2012-0061998

PATIENT
  Sex: Male

DRUGS (1)
  1. VIREAD [Suspect]
     Indication: HIV INFECTION
     Dosage: UNK

REACTIONS (1)
  - Stress fracture [Unknown]
